FAERS Safety Report 9498527 (Version 3)
Quarter: 2014Q4

REPORT INFORMATION
  Report Type: Report from Study
  Country: AT (occurrence: AT)
  Receive Date: 20130904
  Receipt Date: 20141110
  Transmission Date: 20150529
  Serious: Yes (Death, Hospitalization)
  Sender: FDA-Public Use
  Company Number: AT-GLAXOSMITHKLINE-B0919574A

PATIENT
  Age: 72 Year
  Sex: Male
  Weight: 87 kg

DRUGS (1)
  1. PAZOPANIB [Suspect]
     Active Substance: PAZOPANIB
     Indication: RENAL CELL CARCINOMA
     Route: 048
     Dates: start: 20121210, end: 20130320

REACTIONS (1)
  - Neoplasm progression [Fatal]

NARRATIVE: CASE EVENT DATE: 20130604
